FAERS Safety Report 6024761-3 (Version None)
Quarter: 2008Q4

REPORT INFORMATION
  Report Type: 
  Country: None (occurrence: None)
  Receive Date: 20081231
  Receipt Date: 20081226
  Transmission Date: 20090506
  Serious: Yes (Hospitalization)
  Sender: FDA-Public Use
  Company Number: US-BIOGENIDEC-2008BI034828

PATIENT
  Age: 46 Year
  Sex: Male
  Weight: 81 kg

DRUGS (3)
  1. AVONEX [Suspect]
     Indication: MULTIPLE SCLEROSIS
     Route: 030
     Dates: start: 20081017
  2. MOTRIN [Concomitant]
     Indication: NECK PAIN
     Route: 048
     Dates: start: 20081010
  3. ULTRAM [Concomitant]
     Indication: NECK PAIN
     Route: 048
     Dates: start: 20081010

REACTIONS (1)
  - BIPOLAR DISORDER [None]
